FAERS Safety Report 8511077-6 (Version None)
Quarter: 2012Q3

REPORT INFORMATION
  Report Type: 
  Country: None (occurrence: None)
  Receive Date: 20120716
  Receipt Date: 20120709
  Transmission Date: 20120928
  Serious: Yes (Hospitalization)
  Sender: FDA-Public Use
  Company Number: US-SANOFI-AVENTIS-2012SA048966

PATIENT
  Age: 32 Year
  Sex: Female

DRUGS (7)
  1. LANTUS [Suspect]
     Route: 058
  2. LANTUS [Suspect]
     Route: 058
  3. LANTUS [Suspect]
     Route: 058
  4. LANTUS [Suspect]
     Route: 058
  5. HUMALOG [Concomitant]
  6. LANTUS [Suspect]
     Route: 058
  7. LANTUS [Suspect]
     Route: 058

REACTIONS (1)
  - ROAD TRAFFIC ACCIDENT [None]
